FAERS Safety Report 14166772 (Version 1)
Quarter: 2017Q4

REPORT INFORMATION
  Report Type: Spontaneous
  Country: CN (occurrence: CN)
  Receive Date: 20171107
  Receipt Date: 20171107
  Transmission Date: 20180321
  Serious: Yes (Other)
  Sender: FDA-Public Use
  Company Number: CN-BAXTER-2017BAX037393

PATIENT
  Age: 10 Month
  Sex: Male
  Weight: 8 kg

DRUGS (2)
  1. 5% GLUCOSE  INJECTION [Suspect]
     Active Substance: DEXTROSE
     Indication: MEDICATION DILUTION
     Route: 041
     Dates: start: 20170912, end: 20170913
  2. FORTUM [Suspect]
     Active Substance: CEFTAZIDIME
     Indication: URINARY TRACT INFECTION
     Dosage: 4 DOSES
     Route: 041
     Dates: start: 20170912, end: 20170913

REACTIONS (4)
  - Eyelid oedema [Recovering/Resolving]
  - Irritability [Recovering/Resolving]
  - Crying [Recovering/Resolving]
  - Rash [Recovering/Resolving]

NARRATIVE: CASE EVENT DATE: 20170913
